FAERS Safety Report 4784050-1 (Version None)
Quarter: 2005Q3

REPORT INFORMATION
  Report Type: 
  Country: None (occurrence: None)
  Receive Date: 20050930
  Receipt Date: 20050916
  Transmission Date: 20060218
  Serious: Yes (Hospitalization)
  Sender: FDA-Public Use
  Company Number: 2005CG01539

PATIENT
  Age: 1 Day
  Sex: Male

DRUGS (4)
  1. NAROPIN [Suspect]
     Indication: EPIDURAL ANAESTHESIA
     Route: 064
     Dates: start: 20050901, end: 20050901
  2. NAROPIN [Suspect]
     Route: 064
     Dates: start: 20050901, end: 20050901
  3. SUFENTA [Concomitant]
     Indication: EPIDURAL ANAESTHESIA
     Route: 064
     Dates: start: 20050901, end: 20050901
  4. SUFENTA [Concomitant]
     Route: 064
     Dates: start: 20050901, end: 20050901

REACTIONS (4)
  - AGITATION [None]
  - DRUG EXPOSURE DURING PREGNANCY [None]
  - INCORRECT ROUTE OF DRUG ADMINISTRATION [None]
  - TREMOR NEONATAL [None]
